FAERS Safety Report 19435578 (Version 1)
Quarter: 2021Q2

REPORT INFORMATION
  Report Type: Spontaneous
  Country: US (occurrence: US)
  Receive Date: 20210618
  Receipt Date: 20210618
  Transmission Date: 20210717
  Serious: Yes (Other)
  Sender: FDA-Public Use
  Company Number: US-B.I. PHARMACEUTICALS,INC./RIDGEFIELD-2021-BI-109934

PATIENT
  Sex: Female

DRUGS (4)
  1. PREDNISONE. [Concomitant]
     Active Substance: PREDNISONE
     Indication: PRODUCT USED FOR UNKNOWN INDICATION
  2. OFEV [Suspect]
     Active Substance: NINTEDANIB
     Indication: INTERSTITIAL LUNG DISEASE
     Dosage: UNKNOWN
     Route: 048
  3. LISINOPRIL. [Concomitant]
     Active Substance: LISINOPRIL
     Indication: PRODUCT USED FOR UNKNOWN INDICATION
  4. LOSARTAN. [Concomitant]
     Active Substance: LOSARTAN
     Indication: PRODUCT USED FOR UNKNOWN INDICATION

REACTIONS (20)
  - Scleroderma [Unknown]
  - Diarrhoea [Recovered/Resolved]
  - Pruritus [Unknown]
  - Limb injury [Unknown]
  - Lip dry [Unknown]
  - Hypertension [Unknown]
  - Arthralgia [Unknown]
  - Raynaud^s phenomenon [Unknown]
  - Arthropathy [Unknown]
  - Nail discolouration [Unknown]
  - Dry mouth [Unknown]
  - Sclerodactylia [Unknown]
  - Pain [Recovered/Resolved]
  - Swelling [Unknown]
  - Nervousness [Unknown]
  - Lip erythema [Unknown]
  - Skin tightness [Unknown]
  - Ulcer [Not Recovered/Not Resolved]
  - Pulmonary fibrosis [Unknown]
  - Dry skin [Unknown]
